FAERS Safety Report 8739757 (Version 2)
Quarter: 2015Q2

REPORT INFORMATION
  Report Type: Report from Study
  Country: US (occurrence: US)
  Receive Date: 20120823
  Receipt Date: 20150406
  Transmission Date: 20150821
  Serious: Yes (Hospitalization, Other)
  Sender: FDA-Public Use
  Company Number: US-ROCHE-1101224

PATIENT
  Age: 64 Year
  Sex: Female

DRUGS (7)
  1. ASPIRIN. [Concomitant]
     Active Substance: ASPIRIN
     Route: 048
  2. ACTIVASE [Suspect]
     Active Substance: ALTEPLASE
     Route: 042
  3. ACTIVASE [Suspect]
     Active Substance: ALTEPLASE
     Indication: ACUTE MYOCARDIAL INFARCTION
     Route: 042
     Dates: start: 19951205
  4. HEPARIN [Concomitant]
     Active Substance: HEPARIN SODIUM
  5. NITROGLYCERIN. [Concomitant]
     Active Substance: NITROGLYCERIN
  6. ACTIVASE [Suspect]
     Active Substance: ALTEPLASE
     Route: 042
  7. LOPRESSOR [Concomitant]
     Active Substance: METOPROLOL TARTRATE
     Route: 042

REACTIONS (9)
  - Electrocardiogram T wave amplitude increased [Unknown]
  - Dyspnoea [Unknown]
  - Erythema [Unknown]
  - Dizziness [Unknown]
  - Pain [Unknown]
  - Sinus tachycardia [Unknown]
  - Peripheral swelling [Unknown]
  - Nausea [Unknown]
  - Joint swelling [Unknown]

NARRATIVE: CASE EVENT DATE: 19951205
